FAERS Safety Report 5809937-X (Version None)
Quarter: 2008Q3

REPORT INFORMATION
  Report Type: 
  Country: None (occurrence: None)
  Receive Date: 20080715
  Receipt Date: 20080709
  Transmission Date: 20090109
  Serious: Yes (Other)
  Sender: FDA-Public Use
  Company Number: US-BAYER-200812579BCC

PATIENT
  Age: 79 Year
  Sex: Female
  Weight: 64 kg

DRUGS (6)
  1. PHILLIPS MOM CLASSIC MINT [Suspect]
     Indication: CONSTIPATION
     Dosage: TOTAL DAILY DOSE: 30 ML  UNIT DOSE: 30 ML
     Route: 048
     Dates: start: 20080618
  2. PERCOCET [Concomitant]
  3. ULTRAM [Concomitant]
  4. LORAZEPAM [Concomitant]
  5. BLOOD PRESSURE PILL [Concomitant]
  6. STOOL SOFTENER [Concomitant]

REACTIONS (2)
  - ABDOMINAL PAIN UPPER [None]
  - DIVERTICULITIS [None]
